FAERS Safety Report 5578148-8 (Version None)
Quarter: 2007Q4

REPORT INFORMATION
  Report Type: 
  Country: None (occurrence: None)
  Receive Date: 20071231
  Receipt Date: 20071219
  Transmission Date: 20080405
  Serious: Yes (Other)
  Sender: FDA-Public Use
  Company Number: JP-PFIZER INC-2007108128

PATIENT
  Sex: Female

DRUGS (3)
  1. AROMASIN [Suspect]
     Route: 048
  2. GLUCOBAY [Concomitant]
  3. NATEGLINIDE [Concomitant]

REACTIONS (1)
  - BLOOD GLUCOSE INCREASED [None]
